FAERS Safety Report 5219941-0 (Version None)
Quarter: 2007Q1

REPORT INFORMATION
  Report Type: 
  Country: None (occurrence: None)
  Receive Date: 20070125
  Receipt Date: 20070116
  Transmission Date: 20070707
  Serious: Yes (Hospitalization, Other)
  Sender: FDA-Public Use
  Company Number: CA-ABBOTT-07P-028-0356249-00

PATIENT
  Sex: Female
  Weight: 97.7 kg

DRUGS (9)
  1. HUMIRA [Suspect]
     Indication: RHEUMATOID ARTHRITIS
     Route: 058
     Dates: start: 20051014, end: 20061101
  2. HUMIRA [Suspect]
     Route: 058
     Dates: start: 20061208
  3. PREDNISONE TAB [Concomitant]
     Indication: RHEUMATOID ARTHRITIS
     Route: 048
  4. TRIAMCINOLONE ACETONIDE [Concomitant]
     Indication: RHEUMATOID ARTHRITIS
     Route: 030
  5. METHOTREXATE SODIUM [Concomitant]
     Indication: RHEUMATOID ARTHRITIS
     Dosage: NOT REPORTED
     Route: 058
  6. COLECALCIFEROL [Concomitant]
     Indication: DRUG USE FOR UNKNOWN INDICATION
     Route: 048
  7. FOLIC ACID [Concomitant]
     Indication: DRUG USE FOR UNKNOWN INDICATION
     Route: 048
  8. PAROXETINE HYDROCHLORIDE [Concomitant]
     Indication: DRUG USE FOR UNKNOWN INDICATION
     Route: 048
  9. CALCITRIOL [Concomitant]
     Indication: DRUG USE FOR UNKNOWN INDICATION
     Dosage: NOT REPORTED
     Route: 048

REACTIONS (1)
  - RHEUMATOID ARTHRITIS [None]
